FAERS Safety Report 24024306 (Version 1)
Quarter: 2024Q2

REPORT INFORMATION
  Report Type: Report from Study
  Country: IT (occurrence: IT)
  Receive Date: 20240627
  Receipt Date: 20240627
  Transmission Date: 20240716
  Serious: No
  Sender: FDA-Public Use
  Company Number: None

PATIENT
  Age: 73 Year
  Sex: Male

DRUGS (1)
  1. ALECENSA [Suspect]
     Active Substance: ALECTINIB HYDROCHLORIDE
     Indication: Lung adenocarcinoma
     Dosage: THE PATIENT WAS TREATED WITH ALECENSA 150 MG FOR A TOTAL OF 1200 MG/DAY.
     Route: 065

REACTIONS (1)
  - Blood bilirubin increased [Unknown]
